FAERS Safety Report 5210033-3 (Version None)
Quarter: 2006Q4

REPORT INFORMATION
  Report Type: 
  Country: None (occurrence: None)
  Receive Date: 20061127
  Receipt Date: 20060304
  Transmission Date: 20070319
  Serious: Yes (Other)
  Sender: FDA-Public Use
  Company Number: 2006BH008122

PATIENT
  Age: 58 Year
  Sex: Male
  Weight: 108.4097 kg

DRUGS (11)
  1. DIANEAL [Suspect]
     Indication: RENAL FAILURE CHRONIC
     Dosage: IP
     Route: 033
  2. NEUROTINE [Concomitant]
  3. TRICOR [Concomitant]
  4. PAXIL [Concomitant]
  5. LASIX [Concomitant]
  6. ACTOS /USA/ [Concomitant]
  7. ZOCOR [Concomitant]
  8. TUMS WITH CALCIUM [Concomitant]
  9. NORVASC [Concomitant]
  10. LISINOPRIL [Concomitant]
  11. INSULIN [Concomitant]

REACTIONS (2)
  - PERITONITIS BACTERIAL [None]
  - PSEUDOMONAS INFECTION [None]
